FAERS Safety Report 4446547-3 (Version None)
Quarter: 2004Q3

REPORT INFORMATION
  Report Type: 
  Country: None (occurrence: None)
  Receive Date: 20040908
  Receipt Date: 20040830
  Transmission Date: 20050211
  Serious: Yes (Death)
  Sender: FDA-Public Use
  Company Number: USA-2004-0016653

PATIENT
  Sex: Female

DRUGS (3)
  1. OXYCONTIN [Suspect]
     Dosage: 40 MG, Q 12H,
  2. NEURONTIN [Concomitant]
  3. ZANAFLEX [Concomitant]

REACTIONS (1)
  - DEATH [None]
